FAERS Safety Report 4809102-9 (Version None)
Quarter: 2005Q4

REPORT INFORMATION
  Report Type: 
  Country: None (occurrence: None)
  Receive Date: 20051025
  Receipt Date: 20050915
  Transmission Date: 20060501
  Serious: Yes (Other)
  Sender: FDA-Public Use
  Company Number: 2005GB01805

PATIENT
  Age: 1004 Month
  Sex: Male
  Weight: 77.3 kg

DRUGS (7)
  1. ZESTRIL [Suspect]
     Indication: HYPERTENSION
     Dosage: 5 - 10 MG DAILY
     Route: 048
     Dates: start: 20040901
  2. ZESTRIL [Suspect]
     Dosage: 5 - 10 MG DAILY
     Route: 048
     Dates: start: 19950101
  3. AMLODIPINE [Suspect]
     Indication: HYPERTENSION
     Route: 048
     Dates: start: 19900101
  4. ALLOPURINOL [Suspect]
     Route: 048
     Dates: start: 19950101
  5. CHLORAL BETAINE [Suspect]
     Dates: start: 20000101, end: 20050101
  6. ASPIRIN [Concomitant]
  7. SIMVASTATIN [Concomitant]

REACTIONS (1)
  - ALBUMINURIA [None]
